FAERS Safety Report 10475664 (Version 1)
Quarter: 2014Q3

REPORT INFORMATION
  Report Type: Spontaneous
  Country: US (occurrence: US)
  Receive Date: 20140925
  Receipt Date: 20140925
  Transmission Date: 20150326
  Serious: Yes (Hospitalization, Other)
  Sender: FDA-Public Use
  Company Number: US-BAYER-2014-139735

PATIENT
  Age: 30 Year
  Sex: Male

DRUGS (4)
  1. TUMS [Suspect]
     Active Substance: CALCIUM CARBONATE
     Indication: GASTROOESOPHAGEAL REFLUX DISEASE
     Dosage: DAILY DOSE 7 G
     Route: 048
  2. TUMS [Suspect]
     Active Substance: CALCIUM CARBONATE
     Indication: DYSPEPSIA
     Dosage: DAILY DOSE 14 G
     Route: 048
  3. CLINDAMYCIN [Suspect]
     Active Substance: CLINDAMYCIN\CLINDAMYCIN PHOSPHATE
     Indication: JOINT INJURY
     Dosage: UNK
  4. NAPROXEN SODIUM ({= 220 MG) [Suspect]
     Active Substance: NAPROXEN SODIUM
     Indication: JOINT INJURY
     Dosage: UNK

REACTIONS (11)
  - Milk-alkali syndrome [None]
  - Hypercalcaemia [None]
  - Vomiting [None]
  - Metabolic alkalosis [None]
  - Decreased appetite [None]
  - Hypophagia [None]
  - Plasma cell myeloma [None]
  - Nausea [None]
  - Blood pressure increased [None]
  - Acute prerenal failure [None]
  - Hypovolaemia [None]
